FAERS Safety Report 11952723 (Version 1)
Quarter: 2016Q1

REPORT INFORMATION
  Report Type: Report from Study
  Country: CO (occurrence: CO)
  Receive Date: 20160125
  Receipt Date: 20160125
  Transmission Date: 20160526
  Serious: Yes (Death)
  Sender: FDA-Public Use
  Company Number: CO-ABBVIE-16P-036-1544952-00

PATIENT
  Age: 41 Year
  Sex: Female

DRUGS (1)
  1. ZEMPLAR [Suspect]
     Active Substance: PARICALCITOL
     Indication: HYPERPARATHYROIDISM SECONDARY
     Dosage: POST DIALYSIS
     Route: 042

REACTIONS (10)
  - Device related infection [Fatal]
  - Intervertebral discitis [Fatal]
  - Respiratory failure [Fatal]
  - Gait disturbance [Fatal]
  - Altered state of consciousness [Fatal]
  - Haemorrhagic stroke [Fatal]
  - Aneurysm ruptured [Fatal]
  - Pyrexia [Fatal]
  - Pain in extremity [Fatal]
  - Vomiting [Fatal]

NARRATIVE: CASE EVENT DATE: 20160108
